FAERS Safety Report 5723920-4 (Version None)
Quarter: 2008Q2

REPORT INFORMATION
  Report Type: 
  Country: None (occurrence: None)
  Receive Date: 20080428
  Receipt Date: 20080414
  Transmission Date: 20081010
  Serious: Yes (Other)
  Sender: FDA-Public Use
  Company Number: 163-21880-08040158

PATIENT
  Age: 57 Year
  Sex: Male
  Weight: 80.4 kg

DRUGS (8)
  1. REVLIMID [Suspect]
     Indication: MULTIPLE MYELOMA
     Dosage: 15 MG, DAYS 1-21 Q 28 DAYS, ORAL
     Route: 048
     Dates: start: 20070301, end: 20080326
  2. DEXAMETHASONE TAB [Concomitant]
  3. PAMIDRONATE DISODIUM [Concomitant]
  4. CURCUMIN (TURMERIC) [Concomitant]
  5. LIPITOR [Concomitant]
  6. CENTRUM (CENTRUM) [Concomitant]
  7. COUMADIN [Concomitant]
  8. FOSAMAX [Concomitant]

REACTIONS (4)
  - BONE MARROW FAILURE [None]
  - MUSCLE SPASMS [None]
  - MYELODYSPLASTIC SYNDROME [None]
  - NEUROPATHY PERIPHERAL [None]
